FAERS Safety Report 4759668-2 (Version None)
Quarter: 2005Q3

REPORT INFORMATION
  Report Type: 
  Country: None (occurrence: None)
  Receive Date: 20050831
  Receipt Date: 20050816
  Transmission Date: 20060218
  Serious: Yes (Other)
  Sender: FDA-Public Use
  Company Number: USA0508105674

PATIENT
  Age: 69 Year
  Sex: Female

DRUGS (2)
  1. FORTEO [Suspect]
     Dates: start: 20030401, end: 20050401
  2. EVISTA [Suspect]
     Dosage: 60 MG DAY
     Dates: start: 20050401

REACTIONS (4)
  - ARTHRALGIA [None]
  - FRACTURE [None]
  - METASTASIS [None]
  - SCAN BONE MARROW ABNORMAL [None]
